APPROVED DRUG PRODUCT: THIAMINE HYDROCHLORIDE
Active Ingredient: THIAMINE HYDROCHLORIDE
Strength: 100MG/ML
Dosage Form/Route: INJECTABLE;INJECTION
Application: A080556 | Product #001 | TE Code: AP
Applicant: FRESENIUS KABI USA LLC
Approved: Approved Prior to Jan 1, 1982 | RLD: Yes | RS: Yes | Type: RX